FAERS Safety Report 9319182 (Version 2)
Quarter: 2013Q2

REPORT INFORMATION
  Report Type: Report from Study
  Country: MX (occurrence: MX)
  Receive Date: 20130530
  Receipt Date: 20130617
  Transmission Date: 20140414
  Serious: Yes (Hospitalization, Other)
  Sender: FDA-Public Use
  Company Number: MX-INCYTE CORPORATION-2013IN000836

PATIENT
  Age: 62 Year
  Sex: Male

DRUGS (4)
  1. JAKAVI [Suspect]
     Indication: POLYCYTHAEMIA VERA
     Dosage: 5 MG, FOR 10 DAYS
     Route: 048
     Dates: start: 201212
  2. JAKAVI [Suspect]
     Dosage: 20 MG, BID
     Route: 048
     Dates: start: 201301, end: 201305
  3. PRADAXAR [Concomitant]
     Dosage: UNK
     Dates: start: 201005
  4. ZYLOPRIM [Concomitant]
     Dosage: UNK
     Dates: start: 200505

REACTIONS (6)
  - Hepatomegaly [Not Recovered/Not Resolved]
  - Splenomegaly [Not Recovered/Not Resolved]
  - Pain [Not Recovered/Not Resolved]
  - White blood cell disorder [Not Recovered/Not Resolved]
  - Malaise [Not Recovered/Not Resolved]
  - Feeling abnormal [Not Recovered/Not Resolved]
